FAERS Safety Report 5532721-1 (Version None)
Quarter: 2007Q4

REPORT INFORMATION
  Report Type: 
  Country: None (occurrence: None)
  Receive Date: 20071128
  Receipt Date: 20071117
  Transmission Date: 20080405
  Serious: Yes (Other)
  Sender: FDA-Public Use
  Company Number: CHPA2007US12456

PATIENT
  Age: 83 Year
  Sex: Female
  Weight: 69.4 kg

DRUGS (1)
  1. GAS-X MAXIMUM STRENGTH SOFTGELS (NH)(SIMETHICONE) SOFT GELATIN CAPSULE [Suspect]
     Dosage: 332 MG, BID, ORAL
     Route: 048
     Dates: start: 20070901

REACTIONS (2)
  - GASTRIC HAEMORRHAGE [None]
  - RECTAL HAEMORRHAGE [None]
